FAERS Safety Report 15785981 (Version 2)
Quarter: 2019Q4

REPORT INFORMATION
  Report Type: Spontaneous
  Country: US (occurrence: US)
  Receive Date: 20190103
  Receipt Date: 20191202
  Transmission Date: 20200122
  Serious: No
  Sender: FDA-Public Use
  Company Number: US-SA-2019SA000362

PATIENT
  Age: 70 Year
  Sex: Male
  Weight: 91 kg

DRUGS (2)
  1. LANTUS [Suspect]
     Active Substance: INSULIN GLARGINE
     Dosage: UNK
     Route: 065
  2. APIDRA [Suspect]
     Active Substance: INSULIN GLULISINE
     Indication: TYPE 2 DIABETES MELLITUS
     Dosage: 12 IU, AT MEALS
     Route: 065

REACTIONS (2)
  - Blood glucose increased [Unknown]
  - Therapeutic response decreased [Unknown]
